FAERS Safety Report 8520066-7 (Version None)
Quarter: 2012Q3

REPORT INFORMATION
  Report Type: 
  Country: None (occurrence: None)
  Receive Date: 20120719
  Receipt Date: 20120716
  Transmission Date: 20120928
  Serious: No
  Sender: FDA-Public Use
  Company Number: US-PFIZER INC-2012171456

PATIENT
  Sex: Female
  Weight: 54.875 kg

DRUGS (10)
  1. SYNTHROID [Concomitant]
     Dosage: 75 UG, UNK
  2. ALLEGRA [Concomitant]
     Dosage: 180 MG, UNK
  3. POTASSIUM [Concomitant]
     Dosage: 20 MG, UNK
  4. ACETAMINOPHEN AND OXYCODONE HCL [Concomitant]
     Indication: PAIN
     Dosage: 7.5/500 MG, UNK
  5. FENTANYL [Concomitant]
     Dosage: UNK, EVERY 2 HOUR
  6. LYRICA [Suspect]
     Indication: PAIN
     Dosage: 50 MG, 2X/DAY
     Route: 048
     Dates: start: 20120701
  7. PRILOSEC [Concomitant]
     Dosage: 20 MG, UNK
  8. LIPITOR [Concomitant]
     Dosage: 40 MG, UNK
  9. LASIX [Concomitant]
     Dosage: 40 MG, UNK
  10. COUMADIN [Concomitant]
     Dosage: 1 MG, UNK

REACTIONS (1)
  - PAIN [None]
